FAERS Safety Report 7960707-6 (Version None)
Quarter: 2011Q4

REPORT INFORMATION
  Report Type: 
  Country: None (occurrence: None)
  Receive Date: 20111206
  Receipt Date: 20111130
  Transmission Date: 20120403
  Serious: Yes (Death)
  Sender: FDA-Public Use
  Company Number: US-CELGENEUS-163-21880-11110334

PATIENT
  Sex: Male

DRUGS (15)
  1. COUMADIN [Concomitant]
     Dosage: 2 MILLIGRAM
     Route: 048
  2. M.V.I. [Concomitant]
     Dosage: 1 TABLET
     Route: 048
     Dates: start: 20010101
  3. CIPROFLOXACIN HCL [Concomitant]
     Dosage: 500 MILLIGRAM
     Route: 048
  4. ZOLOFT [Concomitant]
     Dosage: 50 MILLIGRAM
     Route: 048
     Dates: start: 20110506
  5. DEXAMETHASONE [Concomitant]
     Dosage: 4 MILLIGRAM
     Route: 048
  6. REVLIMID [Suspect]
     Indication: MULTIPLE MYELOMA
     Dosage: 25 MILLIGRAM
     Route: 048
     Dates: start: 20110720, end: 20111017
  7. LORAZEPAM [Concomitant]
     Indication: NAUSEA
     Dosage: .5 MILLIGRAM
     Route: 048
  8. MELPHALAN HYDROCHLORIDE [Concomitant]
     Dosage: 8 MILLIGRAM
     Route: 048
  9. PREDNISONE TAB [Concomitant]
     Dosage: 100 MILLIGRAM
     Route: 048
  10. VITAMIN A + D [Concomitant]
     Dosage: 10000-400
     Route: 048
  11. ATENOLOL [Concomitant]
     Dosage: 50 MILLIGRAM
     Route: 048
     Dates: start: 20110407
  12. GLUCOPHAGE [Concomitant]
     Dosage: 850 MILLIGRAM
     Route: 048
     Dates: start: 20110201
  13. ACETAMINOPHEN AND HYDROCODONE BITARTRATE [Concomitant]
     Indication: PAIN
     Dosage: 5-500MG
     Route: 048
  14. LISINOPRIL [Concomitant]
     Dosage: 10 MILLIGRAM
     Route: 048
  15. ULORIC [Concomitant]
     Dosage: 40 MILLIGRAM
     Route: 048

REACTIONS (1)
  - MULTIPLE MYELOMA [None]
